FAERS Safety Report 13533364 (Version 1)
Quarter: 2017Q2

REPORT INFORMATION
  Report Type: Spontaneous
  Country: US (occurrence: US)
  Receive Date: 20170510
  Receipt Date: 20170510
  Transmission Date: 20170830
  Serious: No
  Sender: FDA-Public Use
  Company Number: US-TARO-2016TAR00641

PATIENT
  Sex: Female
  Weight: 63.49 kg

DRUGS (7)
  1. CARBAMAZEPINE EXTENDED RELEASE TABLETS USP 400MG [Suspect]
     Active Substance: CARBAMAZEPINE
     Indication: EPILEPSY
     Dosage: ONE TABLET AT 6 AM, ONE TABLET AT 2:15 PM, AND ONE TABLET AT 10 PM
     Route: 048
     Dates: start: 201601
  2. CARBAMAZEPINE EXTENDED RELEASE TABLETS USP 400MG [Suspect]
     Active Substance: CARBAMAZEPINE
     Dosage: UNK
  3. PHENYTOIN SODIUM EXTENDED [Suspect]
     Active Substance: PHENYTOIN SODIUM
     Dosage: 100 MG, 2X/DAY
  4. PRIMIDONE. [Concomitant]
     Active Substance: PRIMIDONE
     Dosage: 2 TABS AT 6 AND 11 AM AND AT 7 PM. 3 TABS AT 2:15 AND 10 PM.
  5. TEGRETOL [Suspect]
     Active Substance: CARBAMAZEPINE
     Indication: EPILEPSY
     Dosage: UNK
     Dates: end: 201601
  6. PHENYTOIN SODIUM EXTENDED [Suspect]
     Active Substance: PHENYTOIN SODIUM
     Dosage: 100 MG,
  7. CARBAMAZEPINE EXTENDED RELEASE TABLETS USP 400MG [Suspect]
     Active Substance: CARBAMAZEPINE
     Dosage: 600 MG AT BEDTIME
     Route: 048

REACTIONS (2)
  - Gingival swelling [Not Recovered/Not Resolved]
  - Contusion [Not Recovered/Not Resolved]
